FAERS Safety Report 13757204 (Version 1)
Quarter: 2017Q3

REPORT INFORMATION
  Report Type: Spontaneous
  Country: US (occurrence: US)
  Receive Date: 20170714
  Receipt Date: 20170714
  Transmission Date: 20171127
  Serious: Yes (Other)
  Sender: FDA-Public Use
  Company Number: None

PATIENT
  Age: 29 Year
  Sex: Male
  Weight: 56.52 kg

DRUGS (2)
  1. BREXPIPRAZOLE [Suspect]
     Active Substance: BREXPIPRAZOLE
     Indication: BIPOLAR DISORDER
     Dosage: ?          OTHER STRENGTH:MG;QUANTITY:1 TABLET(S);OTHER ROUTE:BY MOUTH?
     Route: 048
     Dates: start: 20161124, end: 20161130
  2. ZITHROMAX [Suspect]
     Active Substance: AZITHROMYCIN DIHYDRATE

REACTIONS (4)
  - Product label issue [None]
  - Product tampering [None]
  - Hallucination, auditory [None]
  - Thought broadcasting [None]

NARRATIVE: CASE EVENT DATE: 20161130
